FAERS Safety Report 5917918-0 (Version None)
Quarter: 2008Q4

REPORT INFORMATION
  Report Type: 
  Country: None (occurrence: None)
  Receive Date: 20081014
  Receipt Date: 20081002
  Transmission Date: 20090506
  Serious: Yes (Other)
  Sender: FDA-Public Use
  Company Number: BR-PFIZER INC-2008026270

PATIENT
  Sex: Female

DRUGS (3)
  1. DEPO-PROVERA SUSPENSION/INJ [Suspect]
     Indication: CONTRACEPTION
     Dates: start: 20070925, end: 20070925
  2. DEPO-PROVERA SUSPENSION/INJ [Suspect]
     Dates: start: 20071227, end: 20071227
  3. DEPO-PROVERA SUSPENSION/INJ [Suspect]
     Dates: start: 20080901, end: 20080901

REACTIONS (8)
  - ABDOMINAL PAIN [None]
  - BREAST SWELLING [None]
  - INAPPROPRIATE SCHEDULE OF DRUG ADMINISTRATION [None]
  - MENORRHAGIA [None]
  - OBESITY [None]
  - OEDEMA PERIPHERAL [None]
  - OLIGOMENORRHOEA [None]
  - POLYCYSTIC OVARIES [None]
